FAERS Safety Report 20861792 (Version 7)
Quarter: 2024Q1

REPORT INFORMATION
  Report Type: Spontaneous
  Country: US (occurrence: US)
  Receive Date: 20220523
  Receipt Date: 20240124
  Transmission Date: 20240409
  Serious: Yes (Hospitalization, Other)
  Sender: FDA-Public Use
  Company Number: US-PFIZER INC-202200721565

PATIENT
  Age: 50 Year
  Sex: Female

DRUGS (3)
  1. IBRANCE [Suspect]
     Active Substance: PALBOCICLIB
     Dosage: 125 MG
     Dates: start: 20210130
  2. IBRANCE [Suspect]
     Active Substance: PALBOCICLIB
     Dosage: 100 MG
  3. IBRANCE [Suspect]
     Active Substance: PALBOCICLIB
     Dosage: 1 DF, CYCLIC (TAKE ONE TAB DAILY X 21 DAYS)

REACTIONS (9)
  - COVID-19 pneumonia [Unknown]
  - Neutropenia [Unknown]
  - Product dose omission issue [Unknown]
  - Product prescribing issue [Unknown]
  - Anaemia [Unknown]
  - Liver function test increased [Unknown]
  - Fatigue [Unknown]
  - Arthralgia [Unknown]
  - Blood disorder [Unknown]
